FAERS Safety Report 10672621 (Version 1)
Quarter: 2014Q4

REPORT INFORMATION
  Report Type: Spontaneous
  Country: US (occurrence: US)
  Receive Date: 20141223
  Receipt Date: 20141223
  Transmission Date: 20150529
  Serious: No
  Sender: FDA-Public Use
  Company Number: US-GILEAD-2014-0128380

PATIENT
  Age: 38 Year
  Sex: Female

DRUGS (1)
  1. LETAIRIS [Suspect]
     Active Substance: AMBRISENTAN
     Indication: PRODUCT USED FOR UNKNOWN INDICATION
     Dosage: 10 MG, UNK
     Route: 065
     Dates: start: 20140328

REACTIONS (6)
  - Hypersensitivity [Unknown]
  - Anger [Unknown]
  - Fatigue [Unknown]
  - Influenza [Unknown]
  - Nasopharyngitis [Unknown]
  - Depression [Unknown]

NARRATIVE: CASE EVENT DATE: 20141023
